FAERS Safety Report 8122045-0 (Version None)
Quarter: 2012Q1

REPORT INFORMATION
  Report Type: 
  Country: None (occurrence: None)
  Receive Date: 20120208
  Receipt Date: 20120130
  Transmission Date: 20120608
  Serious: Yes (Hospitalization, Other)
  Sender: FDA-Public Use
  Company Number: US-BAYER-2011-040165

PATIENT
  Age: 20 Year
  Sex: Female
  Weight: 63.492 kg

DRUGS (10)
  1. ACETAMINOPHEN AND HYDROCODONE BITARTRATE [Concomitant]
     Dosage: 5MG/500MG, 1-2 EVERY 6 H PRN
     Route: 048
     Dates: start: 20090224
  2. AMOXICILLIN [Concomitant]
     Dosage: 500 MG, TID
     Route: 048
     Dates: start: 20090318
  3. ASCORBIC ACID [Concomitant]
     Dosage: UNK
     Dates: start: 20080101
  4. ACETAMINOPHEN [Concomitant]
     Dosage: UNK UNK, PRN
     Route: 048
  5. CLINDAMYCIN [Concomitant]
     Dosage: 150 MG, QID
     Route: 048
     Dates: start: 20090318
  6. IBUPROFEN [Concomitant]
     Dosage: 600 MG, TID, PRN
     Route: 048
     Dates: start: 20090318
  7. MAXALT [Concomitant]
     Indication: MIGRAINE
     Dosage: UNK
     Route: 048
     Dates: start: 20080101
  8. ANTIINFLAMMATORY/ANTIRHEUMATIC NON-STEROIDS [Concomitant]
     Dosage: UNK UNK, PRN
     Route: 048
  9. BUSPIRONE HCL [Concomitant]
     Indication: ANXIETY
     Dosage: UNK
     Route: 048
     Dates: start: 20110101
  10. DROSPIRENONE AND ETHINYL ESTRADIOL [Suspect]
     Indication: CONTRACEPTION
     Dosage: UNK
     Dates: start: 20090101, end: 20090801

REACTIONS (11)
  - BILIARY DYSKINESIA [None]
  - ANXIETY [None]
  - ANHEDONIA [None]
  - DEEP VEIN THROMBOSIS [None]
  - PAIN [None]
  - FEAR [None]
  - GALLBLADDER DISORDER [None]
  - DEPRESSION [None]
  - PULMONARY EMBOLISM [None]
  - MYOCARDIAL INFARCTION [None]
  - CEREBROVASCULAR ACCIDENT [None]
